FAERS Safety Report 10650875 (Version 1)
Quarter: 2014Q4

REPORT INFORMATION
  Report Type: Spontaneous
  Country: US (occurrence: US)
  Receive Date: 20141215
  Receipt Date: 20141215
  Transmission Date: 20150529
  Serious: Yes (Hospitalization, Other)
  Sender: FDA-Public Use
  Company Number: US-AMGEN-USASP2014096584

PATIENT
  Age: 56 Year
  Sex: Female

DRUGS (1)
  1. ENBREL [Suspect]
     Active Substance: ETANERCEPT
     Indication: RHEUMATOID ARTHRITIS
     Dosage: 50 MG, QWK
     Route: 065
     Dates: start: 20030205, end: 201111

REACTIONS (5)
  - Infection [Recovered/Resolved]
  - Device breakage [Recovered/Resolved]
  - Road traffic accident [Recovered/Resolved]
  - Device dislocation [Recovered/Resolved]
  - Seizure [Recovered/Resolved]
